FAERS Safety Report 5857427-0 (Version None)
Quarter: 2008Q3

REPORT INFORMATION
  Report Type: 
  Country: None (occurrence: None)
  Receive Date: 20080818
  Receipt Date: 20080616
  Transmission Date: 20090109
  Serious: No
  Sender: FDA-Public Use
  Company Number: TPA2008A00352

PATIENT
  Age: 28 Year
  Sex: Female
  Weight: 51.7101 kg

DRUGS (7)
  1. ROZEREM [Suspect]
     Indication: INSOMNIA
     Dosage: 8 MG, QHS, PER ORAL ; 16 MG, QHS, PER ORAL
     Route: 048
     Dates: start: 20080213, end: 20080219
  2. ROZEREM [Suspect]
     Indication: INSOMNIA
     Dosage: 8 MG, QHS, PER ORAL ; 16 MG, QHS, PER ORAL
     Route: 048
     Dates: start: 20080219, end: 20080312
  3. LEXAPRO [Concomitant]
  4. ZETRID [SIC] (ALL OTHER THERAPEUTIC PRODUCTS) [Concomitant]
  5. YASMIN [Concomitant]
  6. LIBRAX (CHLORDIAZEPOXIDE, CLIDINIUM BROMIDE) [Concomitant]
  7. LUNESTA [Concomitant]

REACTIONS (3)
  - DRUG INEFFECTIVE [None]
  - HALLUCINATION, VISUAL [None]
  - OVERDOSE [None]
